FAERS Safety Report 8453467-6 (Version None)
Quarter: 2012Q2

REPORT INFORMATION
  Report Type: 
  Country: None (occurrence: None)
  Receive Date: 20120620
  Receipt Date: 20120517
  Transmission Date: 20120825
  Serious: No
  Sender: FDA-Public Use
  Company Number: US-VERTEX PHARMACEUTICALS INC.-AE-2012-007405

PATIENT
  Sex: Female

DRUGS (3)
  1. PEGASYS [Concomitant]
     Indication: HEPATITIS C
     Route: 058
     Dates: start: 20120420
  2. INCIVEK [Suspect]
     Indication: HEPATITIS C
     Route: 048
     Dates: start: 20120420
  3. COPEGUS [Concomitant]
     Indication: HEPATITIS C
     Dates: start: 20120420

REACTIONS (7)
  - DIARRHOEA [None]
  - FEAR [None]
  - MIGRAINE [None]
  - DRUG DOSE OMISSION [None]
  - RASH GENERALISED [None]
  - ANORECTAL DISCOMFORT [None]
  - TUNNEL VISION [None]
